FAERS Safety Report 9112625 (Version 4)
Quarter: 2013Q3

REPORT INFORMATION
  Report Type: Spontaneous
  Country: JP (occurrence: JP)
  Receive Date: 20130211
  Receipt Date: 20130913
  Transmission Date: 20140515
  Serious: Yes (Hospitalization, Other)
  Sender: FDA-Public Use
  Company Number: PHHY2012JP096142

PATIENT
  Sex: Female

DRUGS (7)
  1. APRESOLIN [Suspect]
     Indication: PRE-ECLAMPSIA
     Dosage: UNK UKN, UNK
     Route: 048
  2. NICARDIPINE [Suspect]
     Dosage: UNK UKN, UNK
     Route: 041
  3. METHYLDOPA [Suspect]
     Indication: HYPERTENSIVE NEPHROPATHY
     Dosage: UNK UKN, UNK
     Route: 048
  4. MAGNESIUM SULFATE [Suspect]
     Dosage: UNK UKN, UNK
     Route: 041
  5. BETAMETHASONE [Suspect]
     Indication: FOETAL DISORDER
     Dosage: 12 MG, PER DAY
  6. BETAMETHASONE [Suspect]
     Dosage: 24 UNK, UNK
  7. ANAESTHETICS [Concomitant]
     Dosage: UNK

REACTIONS (17)
  - Proteinuria [Recovered/Resolved]
  - Haemoconcentration [Recovered/Resolved]
  - Abnormal clotting factor [Recovered/Resolved]
  - Uterine haemorrhage [Recovered/Resolved]
  - Ascites [Recovered/Resolved]
  - Pleural effusion [Recovered/Resolved]
  - Premature labour [Recovered/Resolved]
  - Chest discomfort [Unknown]
  - Hypertension [Unknown]
  - Coagulopathy [Unknown]
  - Uterine hypotonus [Unknown]
  - Hydrothorax [Unknown]
  - Generalised oedema [Not Recovered/Not Resolved]
  - Blood fibrinogen decreased [Unknown]
  - Urine output decreased [Unknown]
  - Vomiting [Unknown]
  - Maternal exposure during pregnancy [Unknown]
